FAERS Safety Report 20414761 (Version 1)
Quarter: 2022Q1

REPORT INFORMATION
  Report Type: Spontaneous
  Country: CN (occurrence: CN)
  Receive Date: 20220202
  Receipt Date: 20220202
  Transmission Date: 20220423
  Serious: Yes (Hospitalization)
  Sender: FDA-Public Use
  Company Number: CN-BAYER-2022A015587

PATIENT
  Age: 69 Year
  Sex: Male
  Weight: 79 kg

DRUGS (1)
  1. XARELTO [Suspect]
     Active Substance: RIVAROXABAN
     Indication: Cerebrovascular accident prophylaxis
     Dosage: 10 MG, QD
     Route: 048
     Dates: start: 20211225, end: 20220120

REACTIONS (4)
  - Haemoptysis [Recovered/Resolved]
  - Chest discomfort [Unknown]
  - Prescribed underdose [Unknown]
  - Underdose [Unknown]

NARRATIVE: CASE EVENT DATE: 20211225
